FAERS Safety Report 8410096-8 (Version None)
Quarter: 2012Q2

REPORT INFORMATION
  Report Type: 
  Country: None (occurrence: None)
  Receive Date: 20120529
  Receipt Date: 20120516
  Transmission Date: 20120825
  Serious: Yes (Hospitalization)
  Sender: FDA-Public Use
  Company Number: UTC-018925

PATIENT
  Age: 56 Year
  Sex: Female
  Weight: 103.6 kg

DRUGS (3)
  1. REVATIO [Concomitant]
  2. REMODULIN [Suspect]
     Indication: PULMONARY ARTERIAL HYPERTENSION
     Dosage: 77.76 UG/KG (0.054 UG/KG, 1 IN 1 MIN) SUBCUTANEOUS
     Route: 058
     Dates: start: 20071113
  3. COUMADIN [Concomitant]

REACTIONS (2)
  - INFUSION SITE ABSCESS [None]
  - DEVICE BREAKAGE [None]
